FAERS Safety Report 4297087-6 (Version None)
Quarter: 2004Q1

REPORT INFORMATION
  Report Type: 
  Country: None (occurrence: None)
  Receive Date: 20040213
  Receipt Date: 20040130
  Transmission Date: 20041129
  Serious: Yes (Death)
  Sender: FDA-Public Use
  Company Number: B0322571A

PATIENT
  Age: 33 Year
  Sex: Female

DRUGS (2)
  1. NICODERM CQ [Suspect]
     Indication: EX-SMOKER
     Dosage: 14 MG/ PER DAY/ TRANSDERMAL
     Route: 062
     Dates: start: 20031219
  2. LAMOTRIGINE [Concomitant]

REACTIONS (1)
  - SUDDEN DEATH [None]
